FAERS Safety Report 16026061 (Version 1)
Quarter: 2019Q1

REPORT INFORMATION
  Report Type: Spontaneous
  Country: US (occurrence: US)
  Receive Date: 20190302
  Receipt Date: 20190302
  Transmission Date: 20190418
  Serious: Yes (Other)
  Sender: FDA-Public Use
  Company Number: US-TEVA-2019-US-1019304

PATIENT
  Sex: Female
  Weight: 63.11 kg

DRUGS (1)
  1. TRAZODONE [Suspect]
     Active Substance: TRAZODONE HYDROCHLORIDE
     Indication: INSOMNIA
     Dosage: 50MG TABLET TAKING HALF TABLET BY MOUTH AT BEDTIME EVERY NIGHT WITH FOOD
     Route: 048
     Dates: start: 20180702, end: 2018

REACTIONS (2)
  - Dizziness [Unknown]
  - Loss of consciousness [Unknown]
